FAERS Safety Report 8301648-4 (Version None)
Quarter: 2012Q2

REPORT INFORMATION
  Report Type: 
  Country: None (occurrence: None)
  Receive Date: 20120418
  Receipt Date: 20120418
  Transmission Date: 20120825
  Serious: Yes (Other)
  Sender: FDA-Public Use
  Company Number: None

PATIENT
  Age: 62 Year
  Sex: Female
  Weight: 165.5629 kg

DRUGS (12)
  1. FERROUS SULFATE TAB [Concomitant]
  2. ZOMETA [Concomitant]
  3. PROCRIT [Concomitant]
  4. HYDROCHLOROTHIAZIDE [Concomitant]
  5. ASPIRIN [Concomitant]
  6. ALLOPURINOL [Concomitant]
  7. OMEPRAZOLE [Concomitant]
  8. ABRAXANE [Suspect]
     Indication: BREAST CANCER METASTATIC
     Dosage: 250/MG WEEKLY FOR 3 WEEKS THEN 1 WEEK OFF IV VIA PORT
     Route: 042
     Dates: start: 20111223, end: 20120302
  9. METFORMIN HCL [Concomitant]
  10. COMPAZINE [Concomitant]
  11. CRESTOR [Concomitant]
  12. ONDANSETRON [Concomitant]

REACTIONS (1)
  - COOMBS NEGATIVE HAEMOLYTIC ANAEMIA [None]
